FAERS Safety Report 4968919-0 (Version None)
Quarter: 2006Q2

REPORT INFORMATION
  Report Type: 
  Country: None (occurrence: None)
  Receive Date: 20060411
  Receipt Date: 20060331
  Transmission Date: 20061013
  Serious: Yes (Hospitalization, Disabling)
  Sender: FDA-Public Use
  Company Number: PHHO2006JP05455

PATIENT
  Age: 82 Year
  Sex: Female
  Weight: 64 kg

DRUGS (6)
  1. DIOVAN [Suspect]
     Indication: HYPERTENSION
     Dosage: 80 MG, QD
     Route: 048
     Dates: start: 20030807, end: 20040422
  2. CONIEL [Suspect]
     Indication: HYPERTENSION
     Dosage: 4 MG/DAILY
     Route: 048
     Dates: start: 19990920, end: 20040422
  3. RYTHMODAN [Suspect]
     Indication: EXTRASYSTOLES
     Dosage: 150 MG DAILY
     Route: 048
     Dates: start: 19830830, end: 20040422
  4. MINALFENE [Suspect]
     Indication: BACK PAIN
     Dosage: 600 MG/DAILY
     Route: 048
     Dates: start: 20000807, end: 20040422
  5. MERISLON [Concomitant]
     Indication: DIZZINESS POSTURAL
     Dates: start: 20030807, end: 20040422
  6. KOLANTYL [Concomitant]
     Indication: GASTRITIS
     Dates: start: 20030807, end: 20040422

REACTIONS (5)
  - ATRIAL FIBRILLATION [None]
  - CEREBRAL INFARCTION [None]
  - DEPRESSED LEVEL OF CONSCIOUSNESS [None]
  - DYSARTHRIA [None]
  - HEMIPLEGIA [None]
